FAERS Safety Report 10021319 (Version 24)
Quarter: 2015Q2

REPORT INFORMATION
  Report Type: Report from Study
  Country: CA (occurrence: CA)
  Receive Date: 20140319
  Receipt Date: 20150611
  Transmission Date: 20150821
  Serious: Yes (Death, Other)
  Sender: FDA-Public Use
  Company Number: PHHY2013CA045266

PATIENT
  Age: 72 Year
  Sex: Female

DRUGS (9)
  1. SANDOSTATIN LAR DEPOT [Suspect]
     Active Substance: OCTREOTIDE ACETATE
     Dosage: 30 MG, EVERY 2 WEEKS
     Route: 030
  2. SANDOSTATIN LAR DEPOT [Suspect]
     Active Substance: OCTREOTIDE ACETATE
     Dosage: 30 MG, EVERY 2 WEEKS
     Route: 030
     Dates: end: 20150602
  3. SANDOSTATIN LAR DEPOT [Suspect]
     Active Substance: OCTREOTIDE ACETATE
     Dosage: 40 MG, UNK
     Route: 030
     Dates: start: 20150324
  4. SANDOSTATIN LAR DEPOT [Suspect]
     Active Substance: OCTREOTIDE ACETATE
     Indication: NEUROENDOCRINE CARCINOMA
     Dosage: 30 MG, EVERY 4 WEEKS
     Route: 030
     Dates: start: 20130429
  5. SANDOSTATIN LAR DEPOT [Suspect]
     Active Substance: OCTREOTIDE ACETATE
     Dosage: 40 MG, EVERY 2 WEEKS
     Route: 030
  6. SANDOSTATIN LAR DEPOT [Suspect]
     Active Substance: OCTREOTIDE ACETATE
     Dosage: 40 MG, EVERY 4 WEEKS
     Route: 030
  7. SANDOSTATIN LAR DEPOT [Suspect]
     Active Substance: OCTREOTIDE ACETATE
     Dosage: 60 MG, EVERY 4 WEEKS
     Route: 030
  8. SANDOSTATIN LAR DEPOT [Suspect]
     Active Substance: OCTREOTIDE ACETATE
     Dosage: 40 MG, EVERY 2 WEEKS
     Route: 030
  9. TRAMADOL [Concomitant]
     Active Substance: TRAMADOL
     Indication: PRODUCT USED FOR UNKNOWN INDICATION
     Dosage: 2 DF, Q4H (1 OR 2 TABLETS Q4H, WHEN NEEDED)
     Route: 065

REACTIONS (52)
  - Limb injury [Unknown]
  - Memory impairment [Unknown]
  - Cough [Recovered/Resolved]
  - Contusion [Unknown]
  - Swelling [Unknown]
  - Productive cough [Recovered/Resolved]
  - Anxiety [Unknown]
  - Gait disturbance [Unknown]
  - Peripheral swelling [Unknown]
  - Wheezing [Unknown]
  - Diarrhoea [Unknown]
  - Thrombosis [Unknown]
  - Liver disorder [Unknown]
  - Oedema [Unknown]
  - Skin atrophy [Unknown]
  - Musculoskeletal chest pain [Unknown]
  - Nasopharyngitis [Recovered/Resolved]
  - Ascites [Unknown]
  - Blood pressure increased [Unknown]
  - Pollakiuria [Unknown]
  - Neck pain [Unknown]
  - Local swelling [Unknown]
  - Heart rate increased [Unknown]
  - Death [Fatal]
  - Emotional distress [Unknown]
  - Bronchitis [Recovered/Resolved]
  - Neck injury [Unknown]
  - Dysstasia [Unknown]
  - Confusional state [Unknown]
  - Heart rate irregular [Unknown]
  - Asthenia [Unknown]
  - Fall [Unknown]
  - Head injury [Unknown]
  - Pain [Recovered/Resolved]
  - Nasal congestion [Recovered/Resolved]
  - Stress [Unknown]
  - Jaundice [Not Recovered/Not Resolved]
  - Terminal state [Unknown]
  - Hepatic enzyme increased [Not Recovered/Not Resolved]
  - Limb discomfort [Unknown]
  - Hormone level abnormal [Unknown]
  - Dysphonia [Recovered/Resolved]
  - Pallor [Unknown]
  - Eye colour change [Unknown]
  - Fatigue [Unknown]
  - Lung neoplasm [Unknown]
  - Laceration [Unknown]
  - Abdominal distension [Recovered/Resolved]
  - Rectal haemorrhage [Unknown]
  - Joint swelling [Recovering/Resolving]
  - Respiratory rate increased [Unknown]
  - Eating disorder [Unknown]

NARRATIVE: CASE EVENT DATE: 20131219
